FAERS Safety Report 9437292 (Version 1)
Quarter: 2013Q3

REPORT INFORMATION
  Report Type: Report from Study
  Country: NL (occurrence: NL)
  Receive Date: 20130802
  Receipt Date: 20130802
  Transmission Date: 20140515
  Serious: Yes (Hospitalization)
  Sender: FDA-Public Use
  Company Number: PHHY2013NL082420

PATIENT
  Sex: Male

DRUGS (4)
  1. ZOMETA [Suspect]
     Indication: PROSTATE CANCER METASTATIC
     Dosage: 4 MG, PER 100ML, ONCE EVERY 4 WEEKS
     Route: 042
  2. ZOMETA [Suspect]
     Dosage: 4 MG, PER 100ML, ONCE EVERY 4 WEEKS
     Route: 042
     Dates: start: 20130506
  3. ZOMETA [Suspect]
     Dosage: 4 MG, PER 100ML, ONCE EVERY 4 WEEKS
     Route: 042
     Dates: start: 20130604
  4. ZOMETA [Suspect]
     Dosage: 4 MG, PER 100ML, ONCE EVERY 4 WEEKS
     Route: 042
     Dates: start: 20130702

REACTIONS (1)
  - Terminal state [Unknown]
